FAERS Safety Report 6338373-5 (Version None)
Quarter: 2009Q3

REPORT INFORMATION
  Report Type: 
  Country: None (occurrence: None)
  Receive Date: 20090901
  Receipt Date: 20090821
  Transmission Date: 20100115
  Serious: Yes (Hospitalization)
  Sender: FDA-Public Use
  Company Number: 0908-SPO-VANT-0105

PATIENT
  Age: 86 Year
  Sex: Male

DRUGS (3)
  1. VANTAS [Suspect]
     Indication: PROSTATE CANCER
     Dosage: 1 IN 1 Y, SUB Q. IMPLANT
     Route: 058
     Dates: start: 20090801
  2. METOPROLOL TARTRATE [Concomitant]
  3. HERBACET (HERBAL PREPARATION) [Concomitant]

REACTIONS (1)
  - BASAL GANGLIA HAEMORRHAGE [None]
